FAERS Safety Report 21362069 (Version 3)
Quarter: 2022Q4

REPORT INFORMATION
  Report Type: Other
  Country: AU (occurrence: AU)
  Receive Date: 20220922
  Receipt Date: 20221101
  Transmission Date: 20230113
  Serious: Yes (Hospitalization, Other)
  Sender: FDA-Public Use
  Company Number: AU-TOLMAR, INC.-22AU036608

PATIENT
  Sex: Male

DRUGS (1)
  1. ELIGARD [Suspect]
     Active Substance: LEUPROLIDE ACETATE
     Indication: Prostate cancer
     Dosage: UNK

REACTIONS (3)
  - Nephrolithiasis [Not Recovered/Not Resolved]
  - Spinal fracture [Recovering/Resolving]
  - Muscle tightness [Not Recovered/Not Resolved]
